FAERS Safety Report 25062220 (Version 1)
Quarter: 2025Q1

REPORT INFORMATION
  Report Type: Spontaneous
  Country: MX (occurrence: MX)
  Receive Date: 20250311
  Receipt Date: 20250311
  Transmission Date: 20250409
  Serious: Yes (Other)
  Sender: SANDOZ
  Company Number: MX-002147023-NVSC2025MX036156

PATIENT
  Sex: Male
  Weight: 70 kg

DRUGS (3)
  1. AZOPT [Suspect]
     Active Substance: BRINZOLAMIDE
     Indication: Glaucoma
     Dosage: 1 DOSAGE FORM (1%), Q12H (SOLUTION)
     Route: 047
     Dates: start: 202411
  2. VALSARTAN [Suspect]
     Active Substance: VALSARTAN
     Indication: Product used for unknown indication
     Dosage: 1 DOSAGE FORM (160 MG)
     Route: 048
     Dates: start: 2011, end: 2024
  3. XARELTO [Concomitant]
     Active Substance: RIVAROXABAN
     Indication: Anticoagulant therapy
     Dosage: 1 DOSAGE FORM, QD (20 MG) (TABLET)
     Route: 048
     Dates: start: 202406

REACTIONS (3)
  - Glaucoma [Not Recovered/Not Resolved]
  - Arrhythmia [Recovering/Resolving]
  - Off label use [Not Recovered/Not Resolved]

NARRATIVE: CASE EVENT DATE: 20160101
